FAERS Safety Report 15276752 (Version 1)
Quarter: 2018Q3

REPORT INFORMATION
  Report Type: Spontaneous
  Country: CA (occurrence: CA)
  Receive Date: 20180814
  Receipt Date: 20180814
  Transmission Date: 20181010
  Serious: Yes (Other)
  Sender: FDA-Public Use
  Company Number: PHHY2018CA069163

PATIENT
  Age: 10 Year
  Sex: Female

DRUGS (2)
  1. APO?CLOBAZAM [Suspect]
     Active Substance: CLOBAZAM
     Indication: EPILEPSY
     Route: 065
  2. TRILEPTAL [Suspect]
     Active Substance: OXCARBAZEPINE
     Indication: EPILEPSY
     Route: 065

REACTIONS (3)
  - Drug ineffective [Unknown]
  - Seizure [Unknown]
  - Condition aggravated [Unknown]
